FAERS Safety Report 12458887 (Version 2)
Quarter: 2016Q3

REPORT INFORMATION
  Report Type: Report from Study
  Country: US (occurrence: US)
  Receive Date: 20160613
  Receipt Date: 20160727
  Transmission Date: 20161109
  Serious: Yes (Death, Other)
  Sender: FDA-Public Use
  Company Number: US-ROCHE-1501417

PATIENT
  Age: 49 Year
  Sex: Female

DRUGS (13)
  1. AVASTIN [Suspect]
     Active Substance: BEVACIZUMAB
     Route: 042
     Dates: start: 20140818, end: 201408
  2. OXALIPLATIN. [Concomitant]
     Active Substance: OXALIPLATIN
     Indication: COLORECTAL CANCER METASTATIC
     Route: 065
     Dates: start: 20140625
  3. AVASTIN [Suspect]
     Active Substance: BEVACIZUMAB
     Route: 042
     Dates: end: 20141102
  4. LEUCOVORIN. [Concomitant]
     Active Substance: LEUCOVORIN
     Indication: COLORECTAL CANCER METASTATIC
     Route: 065
     Dates: start: 20140625
  5. ZOFRAN [Concomitant]
     Active Substance: ONDANSETRON HYDROCHLORIDE
     Indication: ABDOMINAL DISCOMFORT
     Route: 065
     Dates: start: 20140625
  6. PEPCID [Concomitant]
     Active Substance: FAMOTIDINE
     Route: 065
     Dates: start: 20140625
  7. DIPHENHYDRAMINE. [Concomitant]
     Active Substance: DIPHENHYDRAMINE
     Route: 065
     Dates: start: 20140625
  8. FLUOROURACIL. [Concomitant]
     Active Substance: FLUOROURACIL
     Dosage: PUMP 2400
     Route: 065
     Dates: end: 20140625
  9. DECADRON [Concomitant]
     Active Substance: DEXAMETHASONE
     Route: 065
     Dates: start: 20140625
  10. AVASTIN [Suspect]
     Active Substance: BEVACIZUMAB
     Indication: COLORECTAL CANCER METASTATIC
     Route: 042
     Dates: start: 20140709
  11. AVASTIN [Suspect]
     Active Substance: BEVACIZUMAB
     Route: 042
     Dates: start: 20140729
  12. FLUOROURACIL. [Concomitant]
     Active Substance: FLUOROURACIL
     Indication: NEOPLASM MALIGNANT
     Route: 065
     Dates: end: 20140625
  13. EMEND [Concomitant]
     Active Substance: APREPITANT
     Indication: ABDOMINAL DISCOMFORT
     Route: 065
     Dates: start: 20140625

REACTIONS (12)
  - Small intestinal perforation [Fatal]
  - Muscle spasms [Unknown]
  - Weight decreased [Unknown]
  - Feeding disorder [Unknown]
  - Malaise [Unknown]
  - Abdominal distension [Unknown]
  - Decreased appetite [Unknown]
  - Ascites [Unknown]
  - Solar lentigo [Unknown]
  - Orthopnoea [Unknown]
  - Gastric perforation [Unknown]
  - Asthenia [Unknown]

NARRATIVE: CASE EVENT DATE: 20140903
